FAERS Safety Report 9477771 (Version 8)
Quarter: 2014Q1

REPORT INFORMATION
  Report Type: Spontaneous
  Country: US (occurrence: US)
  Receive Date: 20130827
  Receipt Date: 20140307
  Transmission Date: 20141002
  Serious: No
  Sender: FDA-Public Use
  Company Number: US-009507513-1308USA011937

PATIENT
  Age: 55 Year
  Sex: Female
  Weight: 89.5 kg

DRUGS (16)
  1. PEGINTRON [Suspect]
     Indication: HEPATITIS C
     Dosage: REDIPEN, 150 MICROGRAM, QW
     Route: 058
     Dates: start: 20130809, end: 2013
  2. REBETOL [Suspect]
     Indication: HEPATITIS C
     Dosage: 300 MG, UNK
     Route: 048
     Dates: start: 2013
  3. REBETOL [Suspect]
     Dosage: 600 MG, BID
     Route: 048
     Dates: start: 20130809, end: 2013
  4. REBETOL [Suspect]
     Dosage: 800 MG, DAILY
     Route: 048
     Dates: start: 20130809
  5. VICTRELIS [Suspect]
     Indication: HEPATITIS C
     Dosage: 600 MG, TID
     Route: 048
     Dates: start: 20130831, end: 2013
  6. AMBIEN [Concomitant]
     Dosage: 10 MG, PRN
  7. XANAX [Concomitant]
     Dosage: 1 MG, TID
  8. ALBUTEROL [Concomitant]
     Dosage: UNK, PRN
  9. VITAMIN D (UNSPECIFIED) [Concomitant]
     Dosage: UNK, QD
  10. VITAMINS (UNSPECIFIED) [Concomitant]
     Dosage: UNK, QD
  11. MEGESTROL ACETATE [Concomitant]
  12. LEVOFLOXACIN [Concomitant]
  13. NEUPOGEN [Concomitant]
  14. PROCRIT [Concomitant]
  15. PROMETHAZINE [Concomitant]
  16. HYDROXYZINE [Concomitant]

REACTIONS (44)
  - Immune system disorder [Unknown]
  - Adverse event [Unknown]
  - Weight increased [Unknown]
  - Sputum abnormal [Unknown]
  - Influenza [Unknown]
  - Vomiting [Unknown]
  - Pallor [Unknown]
  - Dyspnoea [Unknown]
  - Abdominal discomfort [Unknown]
  - Cough [Not Recovered/Not Resolved]
  - Dyspnoea [Not Recovered/Not Resolved]
  - Decreased appetite [Unknown]
  - Constipation [Not Recovered/Not Resolved]
  - Nausea [Not Recovered/Not Resolved]
  - Candida infection [Not Recovered/Not Resolved]
  - Pruritus [Not Recovered/Not Resolved]
  - Pyrexia [Unknown]
  - Red blood cell count decreased [Unknown]
  - Rash [Recovering/Resolving]
  - Pain in extremity [Not Recovered/Not Resolved]
  - Upper respiratory tract infection [Unknown]
  - Back pain [Not Recovered/Not Resolved]
  - Lung infection [Unknown]
  - Rash [Unknown]
  - Dysgeusia [Unknown]
  - Stomatitis [Unknown]
  - Influenza like illness [Unknown]
  - Asthenia [Unknown]
  - Decreased appetite [Unknown]
  - Red blood cell count decreased [Unknown]
  - Abdominal discomfort [Unknown]
  - Dyspnoea [Unknown]
  - Rash [Unknown]
  - Fatigue [Unknown]
  - Scratch [Unknown]
  - Fatigue [Unknown]
  - White blood cell count decreased [Unknown]
  - Dyspepsia [Unknown]
  - Dyspnoea [Unknown]
  - Nausea [Unknown]
  - Nausea [Unknown]
  - Nausea [Unknown]
  - Fatigue [Unknown]
  - Pruritus [Unknown]
